FAERS Safety Report 18241508 (Version 2)
Quarter: 2020Q4

REPORT INFORMATION
  Report Type: Spontaneous
  Country: JP (occurrence: JP)
  Receive Date: 20200908
  Receipt Date: 20201001
  Transmission Date: 20210113
  Serious: Yes (Hospitalization)
  Sender: FDA-Public Use
  Company Number: JP-BAYER-2020-187738

PATIENT
  Age: 88 Year
  Sex: Male
  Weight: 39 kg

DRUGS (4)
  1. NUBEQA [Suspect]
     Active Substance: DAROLUTAMIDE
     Indication: HORMONE-REFRACTORY PROSTATE CANCER
     Dosage: 300 MG, BID
     Route: 048
     Dates: start: 20200730, end: 20200829
  2. BEOVA [Concomitant]
  3. BIO-THREE [Concomitant]
     Active Substance: HERBALS
  4. SILODOSIN. [Concomitant]
     Active Substance: SILODOSIN

REACTIONS (3)
  - Rash papular [Recovered/Resolved]
  - Intraocular pressure increased [Unknown]
  - Off label use [None]

NARRATIVE: CASE EVENT DATE: 20200731
